FAERS Safety Report 7364688-8 (Version None)
Quarter: 2011Q1

REPORT INFORMATION
  Report Type: 
  Country: None (occurrence: None)
  Receive Date: 20110315
  Receipt Date: 20110315
  Transmission Date: 20110831
  Serious: No
  Sender: FDA-Public Use
  Company Number: None

PATIENT

DRUGS (2)
  1. VANCOMYCIN [Suspect]
     Indication: PREOPERATIVE CARE
     Dosage: 500 MG IV OVER 60 MINUTES, 1000 MG IV OVER 60 MINUTES
     Route: 042
     Dates: start: 20110101
  2. VANCOMYCIN [Suspect]
     Indication: PROPHYLAXIS
     Dosage: 500 MG IV OVER 60 MINUTES, 1000 MG IV OVER 60 MINUTES
     Route: 042
     Dates: start: 20110101

REACTIONS (3)
  - PRURITUS [None]
  - ERYTHEMA [None]
  - INFUSION RELATED REACTION [None]
